FAERS Safety Report 24394117 (Version 2)
Quarter: 2024Q4

REPORT INFORMATION
  Report Type: Spontaneous
  Country: US (occurrence: US)
  Receive Date: 20241003
  Receipt Date: 20241029
  Transmission Date: 20250115
  Serious: No
  Sender: JOHNSON AND JOHNSON
  Company Number: US-JNJFOC-20240942797

PATIENT
  Age: 45 Year
  Sex: Male

DRUGS (1)
  1. TREMFYA [Suspect]
     Active Substance: GUSELKUMAB
     Indication: Psoriasis
     Dosage: 100.00 MG/ML
     Route: 058
     Dates: start: 20240916

REACTIONS (3)
  - Needle issue [Unknown]
  - Underdose [Unknown]
  - Drug delivery system malfunction [Unknown]
